FAERS Safety Report 22600780 (Version 2)
Quarter: 2024Q3

REPORT INFORMATION
  Report Type: Spontaneous
  Country: AU (occurrence: AU)
  Receive Date: 20230614
  Receipt Date: 20240913
  Transmission Date: 20241017
  Serious: Yes (Other)
  Sender: RANBAXY
  Company Number: AU-SUN PHARMACEUTICAL INDUSTRIES LTD-2023R1-394331

PATIENT
  Age: 24 Year
  Sex: Female

DRUGS (1)
  1. PROPYLTHIOURACIL [Suspect]
     Active Substance: PROPYLTHIOURACIL
     Indication: Hyperthyroidism
     Dosage: UNK
     Route: 065

REACTIONS (2)
  - Drug ineffective [Unknown]
  - Exposure during pregnancy [Unknown]
